FAERS Safety Report 9432454 (Version 1)
Quarter: 2013Q3

REPORT INFORMATION
  Report Type: Spontaneous
  Country: CN (occurrence: CN)
  Receive Date: 20130731
  Receipt Date: 20130731
  Transmission Date: 20140515
  Serious: Yes (Death, Other)
  Sender: FDA-Public Use
  Company Number: CN-JNJFOC-20130714076

PATIENT
  Sex: 0

DRUGS (6)
  1. ITRACONAZOLE [Suspect]
     Indication: BRONCHOPULMONARY ASPERGILLOSIS
     Route: 048
  2. ITRACONAZOLE [Suspect]
     Indication: CHRONIC OBSTRUCTIVE PULMONARY DISEASE
     Route: 048
  3. ITRACONAZOLE [Suspect]
     Indication: BRONCHOPULMONARY ASPERGILLOSIS
     Dosage: LOADING DOSE
     Route: 042
  4. ITRACONAZOLE [Suspect]
     Indication: BRONCHOPULMONARY ASPERGILLOSIS
     Dosage: MAINTENANCE DOSE FROM THE THRID DAY
     Route: 042
  5. ITRACONAZOLE [Suspect]
     Indication: CHRONIC OBSTRUCTIVE PULMONARY DISEASE
     Dosage: MAINTENANCE DOSE FROM THE THRID DAY
     Route: 042
  6. ITRACONAZOLE [Suspect]
     Indication: CHRONIC OBSTRUCTIVE PULMONARY DISEASE
     Dosage: LOADING DOSE
     Route: 042

REACTIONS (2)
  - Death [Fatal]
  - Condition aggravated [Unknown]
